FAERS Safety Report 19254485 (Version 1)
Quarter: 2021Q2

REPORT INFORMATION
  Report Type: Report from Study
  Country: FR (occurrence: FR)
  Receive Date: 20210513
  Receipt Date: 20210513
  Transmission Date: 20210717
  Serious: Yes (Other)
  Sender: FDA-Public Use
  Company Number: FR-SA-2020SA310749

PATIENT
  Age: 45 Year
  Sex: Female

DRUGS (8)
  1. KALETRA [Concomitant]
     Active Substance: LOPINAVIR\RITONAVIR
  2. KALETRA [Concomitant]
     Active Substance: LOPINAVIR\RITONAVIR
  3. ENOXAPARIN [Concomitant]
     Active Substance: ENOXAPARIN
  4. CAPECITABINE. [Concomitant]
     Active Substance: CAPECITABINE
  5. KALETRA [Concomitant]
     Active Substance: LOPINAVIR\RITONAVIR
     Dosage: 200MG
  6. CAPECITABINE. [Concomitant]
     Active Substance: CAPECITABINE
  7. SARILUMAB [Suspect]
     Active Substance: SARILUMAB
     Indication: COVID-19
     Dosage: 400 MG, 1X
     Route: 042
     Dates: start: 20200401
  8. METOPIMAZINE [Concomitant]
     Active Substance: METOPIMAZINE

REACTIONS (1)
  - Neutropenia [Unknown]

NARRATIVE: CASE EVENT DATE: 20200405
